FAERS Safety Report 4563296-1 (Version None)
Quarter: 2005Q1

REPORT INFORMATION
  Report Type: 
  Country: None (occurrence: None)
  Receive Date: 20050128
  Receipt Date: 20031204
  Transmission Date: 20050727
  Serious: No
  Sender: FDA-Public Use
  Company Number: US-GLAXOSMITHKLINE-A0442414A

PATIENT

DRUGS (1)
  1. WELLBUTRIN [Suspect]
     Route: 048
     Dates: end: 20031120

REACTIONS (3)
  - AGITATION [None]
  - ANGER [None]
  - IRRITABILITY [None]
